FAERS Safety Report 7673292-3 (Version None)
Quarter: 2011Q3

REPORT INFORMATION
  Report Type: 
  Country: None (occurrence: None)
  Receive Date: 20110804
  Receipt Date: 20110720
  Transmission Date: 20111222
  Serious: Yes (Hospitalization, Other)
  Sender: FDA-Public Use
  Company Number: 2011MA009185

PATIENT
  Age: 45 Year
  Sex: Female

DRUGS (1)
  1. IBUPROFEN [Suspect]
     Indication: DENTAL CARIES
     Dosage: 14.4 GM QD, PO
     Route: 048

REACTIONS (12)
  - RENAL TUBULAR ACIDOSIS [None]
  - TOXICITY TO VARIOUS AGENTS [None]
  - HYPOKALAEMIA [None]
  - DECREASED APPETITE [None]
  - MICROCYTIC ANAEMIA [None]
  - BLOOD PH DECREASED [None]
  - GASTRIC ULCER [None]
  - OVERDOSE [None]
  - OESOPHAGEAL STENOSIS [None]
  - RENAL FAILURE ACUTE [None]
  - RENAL SALT-WASTING SYNDROME [None]
  - LETHARGY [None]
